FAERS Safety Report 9018467 (Version 1)
Quarter: 2013Q1

REPORT INFORMATION
  Report Type: Spontaneous
  Country: US (occurrence: US)
  Receive Date: 20130118
  Receipt Date: 20130118
  Transmission Date: 20140127
  Serious: No
  Sender: FDA-Public Use
  Company Number: US-PFIZER INC-2013018657

PATIENT
  Sex: Female

DRUGS (1)
  1. ESTRING [Suspect]
     Indication: HOT FLUSH
     Dosage: UNK
     Route: 067

REACTIONS (2)
  - Off label use [Unknown]
  - Drug ineffective for unapproved indication [Unknown]
